FAERS Safety Report 8922024 (Version 1)
Quarter: 2012Q4

REPORT INFORMATION
  Report Type: 
  Country: BR (occurrence: BR)
  Receive Date: 20121126
  Receipt Date: 20121126
  Transmission Date: 20130627
  Serious: Yes (Other)
  Sender: FDA-Public Use
  Company Number: BR-BAYER-2012-121410

PATIENT
  Age: 47 Year
  Sex: Female

DRUGS (6)
  1. BETAFERON [Suspect]
     Indication: MULTIPLE SCLEROSIS
     Dosage: 1 ml, QOD
     Route: 058
     Dates: start: 2005
  2. TEGRETOL CR [Concomitant]
     Indication: CONVULSION
     Dosage: 3 DF, QD (1 DF in AM and 2 at night)
     Route: 048
     Dates: start: 2005
  3. COMPOUNDED DRUG (UNKNOWN) [Concomitant]
     Indication: PAIN
     Dosage: 1 DF, QD
     Route: 048
  4. BACLOFEN [Concomitant]
     Dosage: 2 DF, QD
     Route: 048
  5. RANITIDINE [Concomitant]
     Dosage: 2 DF, QD
     Route: 048
  6. ATENOLOL [Concomitant]
     Dosage: 2 DF, QD
     Route: 048

REACTIONS (3)
  - Extremity necrosis [Recovered/Resolved with Sequelae]
  - Skin necrosis [Not Recovered/Not Resolved]
  - Injection site nodule [Not Recovered/Not Resolved]
